FAERS Safety Report 14767916 (Version 8)
Quarter: 2023Q4

REPORT INFORMATION
  Report Type: Spontaneous
  Country: US (occurrence: None)
  Receive Date: 20180417
  Receipt Date: 20231020
  Transmission Date: 20240110
  Serious: Yes (Death, Hospitalization, Disabling, Other)
  Sender: FDA-Public Use
  Company Number: 2018SE48606

PATIENT
  Age: 610 Month
  Sex: Female
  Weight: 81.6 kg

DRUGS (40)
  1. NEXIUM [Suspect]
     Active Substance: ESOMEPRAZOLE MAGNESIUM
     Indication: Gastrooesophageal reflux disease
     Route: 048
     Dates: start: 198909, end: 201712
  2. NEXIUM [Suspect]
     Active Substance: ESOMEPRAZOLE MAGNESIUM
     Indication: Gastrooesophageal reflux disease
     Route: 048
     Dates: start: 201201, end: 201705
  3. NEXIUM 24HR [Suspect]
     Active Substance: ESOMEPRAZOLE MAGNESIUM
     Route: 048
     Dates: start: 198909, end: 201712
  4. PRILOSEC [Suspect]
     Active Substance: OMEPRAZOLE MAGNESIUM
     Indication: Gastrooesophageal reflux disease
     Route: 048
  5. PRILOSEC [Suspect]
     Active Substance: OMEPRAZOLE MAGNESIUM
     Indication: Gastrooesophageal reflux disease
     Route: 048
     Dates: start: 201201, end: 201705
  6. PRILOSEC OTC [Suspect]
     Active Substance: OMEPRAZOLE MAGNESIUM
     Indication: Gastrooesophageal reflux disease
     Route: 048
     Dates: start: 198909, end: 201712
  7. PRILOSEC OTC [Suspect]
     Active Substance: OMEPRAZOLE MAGNESIUM
     Indication: Gastrooesophageal reflux disease
     Route: 048
     Dates: start: 201201, end: 201705
  8. DEXILANT [Suspect]
     Active Substance: DEXLANSOPRAZOLE
     Dates: start: 198909, end: 201712
  9. PREVACID [Suspect]
     Active Substance: LANSOPRAZOLE
     Indication: Gastrooesophageal reflux disease
     Dates: start: 198909, end: 201712
  10. PREVACID [Suspect]
     Active Substance: LANSOPRAZOLE
     Indication: Gastrooesophageal reflux disease
     Dates: start: 201201, end: 201705
  11. PREVACID 24 HR [Suspect]
     Active Substance: LANSOPRAZOLE
     Indication: Gastrooesophageal reflux disease
     Dates: start: 198909, end: 201712
  12. PROTONIX [Suspect]
     Active Substance: PANTOPRAZOLE SODIUM
     Indication: Gastrooesophageal reflux disease
     Dates: start: 198909, end: 201712
  13. PROTONIX [Suspect]
     Active Substance: PANTOPRAZOLE SODIUM
     Indication: Gastrooesophageal reflux disease
     Dates: start: 201201, end: 201705
  14. PEPCID [Concomitant]
     Active Substance: FAMOTIDINE
  15. ATORVASTATIN [Concomitant]
     Active Substance: ATORVASTATIN
  16. CLOPIDOGREL [Concomitant]
     Active Substance: CLOPIDOGREL BISULFATE
  17. ASPIRIN [Concomitant]
     Active Substance: ASPIRIN
  18. LISINOPRIL [Concomitant]
     Active Substance: LISINOPRIL
  19. PREGABALIN [Concomitant]
     Active Substance: PREGABALIN
  20. REGLAN [Concomitant]
     Active Substance: METOCLOPRAMIDE HYDROCHLORIDE
  21. PLAVIX [Concomitant]
     Active Substance: CLOPIDOGREL BISULFATE
  22. LANTUS [Concomitant]
     Active Substance: INSULIN GLARGINE
  23. NEPHROCAPS [Concomitant]
     Active Substance: ASCORBIC ACID\BIOTIN\CYANOCOBALAMIN\FOLIC ACID\NIACIN\PANTOTHENIC ACID\PYRIDOXINE\RIBOFLAVIN\THIAMIN
  24. NOVOLOG [Concomitant]
     Active Substance: INSULIN ASPART
  25. ISOSORBIDE MONONITRATE [Concomitant]
     Active Substance: ISOSORBIDE MONONITRATE
  26. ACETAMINOPHEN\HYDROCODONE BITARTRATE [Concomitant]
     Active Substance: ACETAMINOPHEN\HYDROCODONE BITARTRATE
  27. LACTULOSE [Concomitant]
     Active Substance: LACTULOSE
  28. DOCUSATE [Concomitant]
     Active Substance: DOCUSATE
  29. EPOETIN ALFA [Concomitant]
     Active Substance: ERYTHROPOIETIN
  30. ONDANSETRON [Concomitant]
     Active Substance: ONDANSETRON
  31. BISACODYL [Concomitant]
     Active Substance: BISACODYL
  32. DEXTROSE [Concomitant]
     Active Substance: DEXTROSE\DEXTROSE MONOHYDRATE
  33. MAGNESIUM SULFATE [Concomitant]
     Active Substance: MAGNESIUM SULFATE\MAGNESIUM SULFATE HEPTAHYDRATE
  34. VITAMINS [Concomitant]
     Active Substance: VITAMINS
  35. CLONAZEPAM [Concomitant]
     Active Substance: CLONAZEPAM
  36. KETOCONAZOLE [Concomitant]
     Active Substance: KETOCONAZOLE
  37. GABAPENTIN [Concomitant]
     Active Substance: GABAPENTIN
  38. AMLODIPINE [Concomitant]
     Active Substance: AMLODIPINE BESYLATE
  39. TRAMADOL [Concomitant]
     Active Substance: TRAMADOL\TRAMADOL HYDROCHLORIDE
  40. LOSARTAN [Concomitant]
     Active Substance: LOSARTAN

REACTIONS (7)
  - Acute myocardial infarction [Fatal]
  - Coronary artery disease [Fatal]
  - Chronic kidney disease [Unknown]
  - Renal injury [Unknown]
  - End stage renal disease [Not Recovered/Not Resolved]
  - Renal failure [Unknown]
  - Nephrogenic anaemia [Unknown]

NARRATIVE: CASE EVENT DATE: 20160901
